FAERS Safety Report 25109609 (Version 1)
Quarter: 2025Q1

REPORT INFORMATION
  Report Type: Spontaneous
  Country: US (occurrence: US)
  Receive Date: 20250323
  Receipt Date: 20250323
  Transmission Date: 20250409
  Serious: No
  Sender: MERCK SHARP & DOHME LLC
  Company Number: US-009507513-2257676

PATIENT
  Sex: Female
  Weight: 67.132 kg

DRUGS (26)
  1. SOTATERCEPT [Suspect]
     Active Substance: SOTATERCEPT
     Indication: Product used for unknown indication
     Dates: end: 202502
  2. SOTATERCEPT [Suspect]
     Active Substance: SOTATERCEPT
  3. SOTATERCEPT [Suspect]
     Active Substance: SOTATERCEPT
  4. SOTATERCEPT [Suspect]
     Active Substance: SOTATERCEPT
  5. TREPROSTINIL SODIUM [Suspect]
     Active Substance: TREPROSTINIL SODIUM
     Indication: Pulmonary arterial hypertension
     Route: 058
  6. TREPROSTINIL SODIUM [Suspect]
     Active Substance: TREPROSTINIL SODIUM
     Indication: Pulmonary arterial hypertension
     Route: 058
     Dates: start: 20231220
  7. REMODULIN [Suspect]
     Active Substance: TREPROSTINIL
     Indication: Pulmonary arterial hypertension
     Route: 058
  8. REMODULIN [Suspect]
     Active Substance: TREPROSTINIL
     Indication: Pulmonary arterial hypertension
     Route: 058
  9. IBUPROFEN [Concomitant]
     Active Substance: IBUPROFEN
  10. FOLIC ACID [Concomitant]
     Active Substance: FOLIC ACID
  11. SODIUM CHLORIDE [Concomitant]
     Active Substance: SODIUM CHLORIDE
  12. OPSUMIT [Concomitant]
     Active Substance: MACITENTAN
  13. TYLENOL ARTHRITIS PAIN [Concomitant]
     Active Substance: ACETAMINOPHEN
  14. ALBUTEROL SULFATE [Concomitant]
     Active Substance: ALBUTEROL SULFATE
  15. FENOFIBRATE [Concomitant]
     Active Substance: FENOFIBRATE
  16. Chondroitin;Colecalciferol;Glucosamine [Concomitant]
  17. SILDENAFIL [Concomitant]
     Active Substance: SILDENAFIL
  18. VITAMIN C [Concomitant]
     Active Substance: ASCORBIC ACID
  19. MAGNESIUM [Concomitant]
     Active Substance: MAGNESIUM
  20. VITAMINS [Concomitant]
     Active Substance: VITAMINS
  21. VITAMIN D3 [Concomitant]
     Active Substance: CHOLECALCIFEROL
  22. OXYGEN [Concomitant]
     Active Substance: OXYGEN
  23. OMEPRAZOLE [Concomitant]
     Active Substance: OMEPRAZOLE
  24. CYCLOBENZAPRINE HYDROCHLORIDE [Concomitant]
     Active Substance: CYCLOBENZAPRINE HYDROCHLORIDE
  25. ASPIRIN [Concomitant]
     Active Substance: ASPIRIN
  26. ONDANSETRON HYDROCHLORIDE [Concomitant]
     Active Substance: ONDANSETRON HYDROCHLORIDE

REACTIONS (3)
  - Laboratory test abnormal [Recovered/Resolved]
  - Headache [Unknown]
  - Nausea [Unknown]

NARRATIVE: CASE EVENT DATE: 20250101
